FAERS Safety Report 10920158 (Version 1)
Quarter: 2015Q1

REPORT INFORMATION
  Report Type: Spontaneous
  Country: GR (occurrence: GR)
  Receive Date: 20150317
  Receipt Date: 20150317
  Transmission Date: 20150721
  Serious: Yes (Hospitalization)
  Sender: FDA-Public Use
  Company Number: PHHY2015GR026332

PATIENT
  Age: 25 Year
  Sex: Male

DRUGS (1)
  1. EXJADE [Suspect]
     Active Substance: DEFERASIROX
     Indication: IRON OVERLOAD
     Dosage: 25 MG/KG, QD
     Route: 065

REACTIONS (3)
  - Bile duct obstruction [Unknown]
  - Cholelithiasis [Unknown]
  - Hepatic enzyme increased [Unknown]
